FAERS Safety Report 6020262-7 (Version None)
Quarter: 2008Q4

REPORT INFORMATION
  Report Type: 
  Country: None (occurrence: None)
  Receive Date: 20081226
  Receipt Date: 20081218
  Transmission Date: 20090506
  Serious: Yes (Hospitalization, Other)
  Sender: FDA-Public Use
  Company Number: PHHY2008JP30607

PATIENT
  Sex: Female

DRUGS (13)
  1. COMTAN [Suspect]
     Indication: DRUG EFFECT DECREASED
     Dosage: 100 MG/DAY
     Route: 048
     Dates: start: 20081021, end: 20081111
  2. E C DOPAL [Concomitant]
     Dosage: 350 MG, UNK
     Route: 048
  3. PRAMIPEXOLE DIHYDROCHLORIDE [Concomitant]
     Indication: PARKINSON'S DISEASE
     Dosage: 1.5 MG, UNK
     Route: 048
  4. DOMIN [Concomitant]
     Indication: PARKINSON'S DISEASE
     Dosage: 0.4 MG, UNK
     Route: 048
     Dates: start: 20080331
  5. CARBIDOPA AND LEVODOPA [Concomitant]
     Indication: PARKINSON'S DISEASE
     Dosage: 350 MG, UNK
     Route: 048
  6. DOPS [Concomitant]
     Indication: PARKINSON'S DISEASE
     Dosage: 300 MG, UNK
     Route: 048
  7. MAGLAX [Concomitant]
     Dosage: 1000 MG, UNK
  8. BERIZYM [Concomitant]
     Route: 048
  9. SELBEX [Concomitant]
     Dosage: 150 MG, UNK
     Route: 048
  10. RHYTHMY [Concomitant]
     Dosage: 2 MG, UNK
     Route: 048
  11. LAXOBERON [Concomitant]
     Dosage: 1 MG, UNK
     Route: 048
  12. GASMOTIN [Concomitant]
     Dosage: 15 MG, UNK
     Route: 048
  13. GASCON [Concomitant]
     Dosage: 120 MG, UNK
     Route: 048

REACTIONS (9)
  - ALANINE AMINOTRANSFERASE INCREASED [None]
  - ALTERED STATE OF CONSCIOUSNESS [None]
  - ASPARTATE AMINOTRANSFERASE INCREASED [None]
  - BLOOD CREATINE PHOSPHOKINASE INCREASED [None]
  - BLOOD UREA INCREASED [None]
  - CONTUSION [None]
  - FALL [None]
  - HALLUCINATION [None]
  - HUMERUS FRACTURE [None]
